FAERS Safety Report 13263538 (Version 1)
Quarter: 2017Q1

REPORT INFORMATION
  Report Type: Spontaneous
  Country: US (occurrence: US)
  Receive Date: 20170223
  Receipt Date: 20170223
  Transmission Date: 20170428
  Serious: No
  Sender: FDA-Public Use
  Company Number: US-009507513-1702USA009756

PATIENT
  Sex: Female

DRUGS (1)
  1. ASMANEX [Suspect]
     Active Substance: MOMETASONE FUROATE
     Indication: EMPHYSEMA
     Dosage: UNK
     Route: 055
     Dates: start: 20170217, end: 20170220

REACTIONS (7)
  - Eating disorder [Recovered/Resolved]
  - Dehydration [Recovered/Resolved]
  - Neck pain [Recovered/Resolved]
  - Headache [Recovered/Resolved]
  - Poor quality sleep [Recovered/Resolved]
  - Product use issue [Unknown]
  - Dyspnoea [Recovered/Resolved]

NARRATIVE: CASE EVENT DATE: 20170217
